FAERS Safety Report 9247895 (Version 1)
Quarter: 2013Q1

REPORT INFORMATION
  Report Type: Spontaneous
  Country: US (occurrence: None)
  Receive Date: 20130305
  Receipt Date: 20130305
  Transmission Date: 20140127
  Serious: Yes (Other)
  Sender: FDA-Public Use
  Company Number: 163-21880-12093322

PATIENT
  Sex: Female

DRUGS (2)
  1. REVLIMID [Suspect]
     Indication: PLASMA CELL MYELOMA
     Dosage: 15 MG, 1 1 IN 2 D, PO
     Route: 048
     Dates: start: 20120613
  2. VITAMIN D (ERGOCALCIFEROL) [Concomitant]

REACTIONS (1)
  - Constipation [None]
